FAERS Safety Report 12236244 (Version 1)
Quarter: 2016Q2

REPORT INFORMATION
  Report Type: Spontaneous
  Country: US (occurrence: US)
  Receive Date: 20160404
  Receipt Date: 20160404
  Transmission Date: 20160815
  Serious: No
  Sender: FDA-Public Use
  Company Number: US-GREER LABORATORIES, INC.-1050200

PATIENT
  Age: 8 Year
  Sex: Male
  Weight: 22.73 kg

DRUGS (2)
  1. INSECTS (WHOLE BODY), ANT, FIRE SOLENOPSIS INVICTA [Suspect]
     Active Substance: SOLENOPSIS INVICTA
     Indication: ALLERGY TO ARTHROPOD STING
     Route: 058
     Dates: start: 20150917
  2. INSECTS (WHOLE BODY), ANT, FIRE SOLENOPSIS RICHTERI [Suspect]
     Active Substance: SOLENOPSIS RICHTERI
     Route: 058
     Dates: start: 20150917

REACTIONS (3)
  - Sneezing [Recovered/Resolved]
  - Product quality issue [None]
  - Nasal congestion [Recovered/Resolved]

NARRATIVE: CASE EVENT DATE: 20151015
